FAERS Safety Report 9472949 (Version 1)
Quarter: 2013Q3

REPORT INFORMATION
  Report Type: Spontaneous
  Country: US (occurrence: US)
  Receive Date: 20130823
  Receipt Date: 20130823
  Transmission Date: 20140515
  Serious: No
  Sender: FDA-Public Use
  Company Number: US-BRISTOL-MYERS SQUIBB COMPANY-17254962

PATIENT
  Age: 36 Year
  Sex: Male
  Weight: 117.91 kg

DRUGS (3)
  1. SPRYCEL (CML) TABS 100 MG [Suspect]
     Indication: CHRONIC MYELOID LEUKAEMIA
     Dates: start: 20121105
  2. FLEXERIL [Concomitant]
  3. VITAMIN D [Concomitant]

REACTIONS (2)
  - Sinusitis [Recovering/Resolving]
  - Pain [Recovering/Resolving]
